FAERS Safety Report 10362680 (Version 3)
Quarter: 2014Q4

REPORT INFORMATION
  Report Type: Spontaneous
  Country: US (occurrence: None)
  Receive Date: 20140729
  Receipt Date: 20141119
  Transmission Date: 20150528
  Serious: Yes (Other)
  Sender: FDA-Public Use
  Company Number: ADR-2014-01177

PATIENT
  Age: 59 Year
  Sex: Male

DRUGS (6)
  1. LOTREL [Suspect]
     Active Substance: AMLODIPINE BESYLATE\BENAZEPRIL HYDROCHLORIDE
  2. ADDERALL [Suspect]
     Active Substance: AMPHETAMINE ASPARTATE\AMPHETAMINE SULFATE\DEXTROAMPHETAMINE SACCHARATE\DEXTROAMPHETAMINE SULFATE
  3. BACLOFEN INTRATHECAL [Suspect]
     Active Substance: BACLOFEN
     Indication: PAIN
     Dosage: 279.80MCG/DAY (SEE B5)?
  4. FENTANYL (INTRATHECAL) 700 MCG/ML [Suspect]
     Active Substance: FENTANYL
     Indication: PAIN
     Dosage: 279.80MCG/DAY (SEE B5)
  5. EFFEXOR [Suspect]
     Active Substance: VENLAFAXINE HYDROCHLORIDE
  6. AMITRIPTYLINE [Suspect]
     Active Substance: AMITRIPTYLINE

REACTIONS (6)
  - Drug withdrawal syndrome [None]
  - Tremor [None]
  - Formication [None]
  - Pain [None]
  - Hyperhidrosis [None]
  - Device failure [None]

NARRATIVE: CASE EVENT DATE: 20140629
